FAERS Safety Report 10156599 (Version 1)
Quarter: 2014Q2

REPORT INFORMATION
  Report Type: Report from Study
  Country: US (occurrence: US)
  Receive Date: 20140507
  Receipt Date: 20140507
  Transmission Date: 20141212
  Serious: Yes (Other)
  Sender: FDA-Public Use
  Company Number: US-ROCHE-1394886

PATIENT
  Sex: Male
  Weight: 22.3 kg

DRUGS (9)
  1. NUTROPIN [Suspect]
     Indication: RENAL FAILURE CHRONIC
     Route: 058
     Dates: end: 201306
  2. ENALAPRIL [Concomitant]
     Route: 048
  3. ERGOCALCIFEROL [Concomitant]
     Route: 048
  4. SODIUM BICARBONATE [Concomitant]
     Route: 048
  5. POLYETHYLENE GLYCOL [Concomitant]
     Route: 048
  6. TYLENOL [Concomitant]
     Dosage: EVERY SIX HOURS AS NEEDED
     Route: 048
  7. OXYCODONE [Concomitant]
     Dosage: 2 ML/2 MG
     Route: 048
  8. ZANTAC [Concomitant]
     Route: 048
  9. SEPTRA [Concomitant]
     Route: 048

REACTIONS (5)
  - Vitamin D deficiency [Unknown]
  - Growth retardation [Unknown]
  - Bone development abnormal [Unknown]
  - Weight gain poor [Unknown]
  - Constipation [Unknown]
